FAERS Safety Report 21270729 (Version 1)
Quarter: 2022Q3

REPORT INFORMATION
  Report Type: Spontaneous
  Country: DE (occurrence: DE)
  Receive Date: 20220830
  Receipt Date: 20220830
  Transmission Date: 20221027
  Serious: Yes (Other)
  Sender: FDA-Public Use
  Company Number: DE-Laboratoires BESINS-INTERNATIONAL-2022-19423

PATIENT
  Sex: Female

DRUGS (3)
  1. ESTRADIOL [Suspect]
     Active Substance: ESTRADIOL
     Indication: Product used for unknown indication
     Dosage: THERAPY START DATE : ASKU
     Route: 065
  2. PROGESTERONE [Suspect]
     Active Substance: PROGESTERONE
     Indication: Product used for unknown indication
     Dosage: 100 MILLIGRAM DAILY; A UTROGEST 100 MG CAPSULE VAGINALLY IN THE EVENING, THERAPY START DATE : ASKU
  3. PROGESTERONE [Suspect]
     Active Substance: PROGESTERONE
     Dosage: THERAPY START DATE : ASKU

REACTIONS (3)
  - Syncope [Unknown]
  - Dizziness [Unknown]
  - Product use issue [Unknown]
